FAERS Safety Report 11604250 (Version 1)
Quarter: 2015Q3

REPORT INFORMATION
  Report Type: Spontaneous
  Country: US (occurrence: US)
  Receive Date: 20150916
  Receipt Date: 20150916
  Transmission Date: 20151125
  Serious: No
  Sender: FDA-Public Use
  Company Number: US-ELI_LILLY_AND_COMPANY-US201405005797

PATIENT
  Sex: Male

DRUGS (4)
  1. HUMALOG [Suspect]
     Active Substance: INSULIN LISPRO
     Indication: TYPE 2 DIABETES MELLITUS
     Dosage: 48 U, EACH MORNING
     Route: 065
     Dates: start: 2013
  2. BYETTA [Concomitant]
     Active Substance: EXENATIDE
     Dosage: 5 UG, BID
     Route: 065
  3. HUMALOG [Suspect]
     Active Substance: INSULIN LISPRO
     Dosage: 50 U, BID
     Route: 065
     Dates: start: 2013
  4. LEVEMIR [Concomitant]
     Active Substance: INSULIN DETEMIR
     Route: 065

REACTIONS (4)
  - Hypersensitivity [Unknown]
  - Urinary tract infection [Unknown]
  - Blood proinsulin increased [Unknown]
  - Blood glucose increased [Unknown]
